FAERS Safety Report 5373469-6 (Version None)
Quarter: 2007Q2

REPORT INFORMATION
  Report Type: 
  Country: None (occurrence: None)
  Receive Date: 20070626
  Receipt Date: 20070626
  Transmission Date: 20071010
  Serious: Yes (Other)
  Sender: FDA-Public Use
  Company Number: None

PATIENT
  Sex: Male
  Weight: 81.6475 kg

DRUGS (1)
  1. TRASYLOL [Suspect]
     Indication: HAEMORRHAGE PROPHYLAXIS
     Dosage: 1.4MG/CC
     Dates: start: 20070427, end: 20070427

REACTIONS (3)
  - CEREBROVASCULAR ACCIDENT [None]
  - EMBOLIC STROKE [None]
  - POST PROCEDURAL COMPLICATION [None]
